FAERS Safety Report 12774240 (Version 1)
Quarter: 2016Q3

REPORT INFORMATION
  Report Type: Spontaneous
  Country: US (occurrence: US)
  Receive Date: 20160923
  Receipt Date: 20160923
  Transmission Date: 20161109
  Serious: No
  Sender: FDA-Public Use
  Company Number: US-PFIZER INC-2016440201

PATIENT
  Age: 48 Year
  Sex: Male
  Weight: 106.59 kg

DRUGS (1)
  1. VIAGRA [Suspect]
     Active Substance: SILDENAFIL CITRATE
     Indication: ERECTILE DYSFUNCTION
     Dosage: 100 MG, 1X/DAY
     Route: 048
     Dates: start: 201608

REACTIONS (2)
  - Ejaculation disorder [Not Recovered/Not Resolved]
  - Erection increased [Recovering/Resolving]

NARRATIVE: CASE EVENT DATE: 201609
